FAERS Safety Report 5611753-9 (Version None)
Quarter: 2008Q1

REPORT INFORMATION
  Report Type: 
  Country: None (occurrence: None)
  Receive Date: 20080128
  Receipt Date: 20060628
  Transmission Date: 20080703
  Serious: Yes (Hospitalization)
  Sender: FDA-Public Use
  Company Number: DSA_28397_2006

PATIENT
  Sex: Female

DRUGS (3)
  1. DILTIAZEM HYDROCHLORIDE         (TIAZAC XC-DILTIAZEM HYDROCHLORIDE) [Suspect]
     Dosage: (DF UNKNOWN)
     Dates: start: 20060406
  2. ANCEF [Concomitant]
  3. KEFLEX              /00145501/ [Concomitant]

REACTIONS (1)
  - CELLULITIS [None]
